FAERS Safety Report 15288862 (Version 2)
Quarter: 2019Q2

REPORT INFORMATION
  Report Type: Spontaneous
  Country: GR (occurrence: GR)
  Receive Date: 20180817
  Receipt Date: 20190429
  Transmission Date: 20190711
  Serious: Yes (Hospitalization)
  Sender: FDA-Public Use
  Company Number: PHHY2017GR204542

PATIENT
  Age: 57 Year
  Sex: Female
  Weight: 90 kg

DRUGS (6)
  1. DOCETAXEL. [Suspect]
     Active Substance: DOCETAXEL
     Indication: BREAST CANCER
     Dosage: 75 MG/M2, Q3W
     Route: 042
     Dates: start: 20170102
  2. PERTUZUMAB. [Suspect]
     Active Substance: PERTUZUMAB
     Dosage: 420 MG, Q3W
     Route: 042
     Dates: start: 20170516
  3. TRASTUZUMAB. [Suspect]
     Active Substance: TRASTUZUMAB
     Indication: HER-2 POSITIVE BREAST CANCER
     Dosage: 600 UG, Q3W (LAST DOSE PRIOR TO ONSENT OF EVENTS 16 MAY 2017)
     Route: 058
     Dates: start: 20170102
  4. DOCETAXEL. [Suspect]
     Active Substance: DOCETAXEL
     Dosage: 75 MG/M2, Q3W
     Route: 042
     Dates: start: 20170516
  5. TRASTUZUMAB EMTANSINE [Suspect]
     Active Substance: ADO-TRASTUZUMAB EMTANSINE
     Indication: HER-2 POSITIVE BREAST CANCER
     Dosage: 290 MG, Q3W
     Route: 042
  6. PERTUZUMAB. [Suspect]
     Active Substance: PERTUZUMAB
     Indication: HER-2 POSITIVE BREAST CANCER
     Dosage: 420 MG, Q3W
     Route: 042
     Dates: start: 20170102

REACTIONS (2)
  - Urinary tract infection [Recovered/Resolved]
  - Bone marrow infiltration [Recovered/Resolved]

NARRATIVE: CASE EVENT DATE: 20170605
